FAERS Safety Report 15791580 (Version 1)
Quarter: 2019Q1

REPORT INFORMATION
  Report Type: Spontaneous
  Country: IT (occurrence: IT)
  Receive Date: 20190105
  Receipt Date: 20190105
  Transmission Date: 20190417
  Serious: Yes (Other)
  Sender: FDA-Public Use
  Company Number: IT-SUN PHARMACEUTICAL INDUSTRIES LTD-2018RR-195298

PATIENT
  Age: 64 Year
  Sex: Female

DRUGS (1)
  1. TEMOZOLOMIDE SUN [Suspect]
     Active Substance: TEMOZOLOMIDE
     Indication: PRODUCT USED FOR UNKNOWN INDICATION
     Dosage: ()
     Route: 065

REACTIONS (5)
  - Leukopenia [Unknown]
  - Asthenia [Unknown]
  - Thrombocytopenia [Unknown]
  - Haematoma [Unknown]
  - Constipation [Unknown]

NARRATIVE: CASE EVENT DATE: 20180501
